FAERS Safety Report 11165258 (Version 1)
Quarter: 2015Q2

REPORT INFORMATION
  Report Type: Spontaneous
  Country: GB (occurrence: GB)
  Receive Date: 20150604
  Receipt Date: 20150604
  Transmission Date: 20150821
  Serious: Yes (Hospitalization, Other)
  Sender: FDA-Public Use
  Company Number: GB-WATSON-2015-10806

PATIENT
  Age: 32 Year
  Sex: Female
  Weight: 79.37 kg

DRUGS (1)
  1. CITALOPRAM [Suspect]
     Active Substance: CITALOPRAM HYDROBROMIDE
     Indication: ANXIETY
     Dosage: 20 MG, DAILY
     Route: 048
     Dates: start: 20150506, end: 20150508

REACTIONS (12)
  - Disorientation [Unknown]
  - Burning sensation [Recovered/Resolved]
  - Syncope [Unknown]
  - Sensory disturbance [Recovered/Resolved]
  - Fatigue [Not Recovered/Not Resolved]
  - Dizziness [Unknown]
  - Glossodynia [Recovered/Resolved]
  - Headache [Recovered/Resolved with Sequelae]
  - Presyncope [Recovered/Resolved]
  - Nausea [Recovered/Resolved]
  - Dyspepsia [Not Recovered/Not Resolved]
  - Muscular weakness [Not Recovered/Not Resolved]

NARRATIVE: CASE EVENT DATE: 20150506
